FAERS Safety Report 24988078 (Version 1)
Quarter: 2025Q1

REPORT INFORMATION
  Report Type: Spontaneous
  Country: IT (occurrence: IT)
  Receive Date: 20250220
  Receipt Date: 20250220
  Transmission Date: 20250409
  Serious: Yes (Death, Other)
  Sender: JAZZ
  Company Number: IT-JAZZ PHARMACEUTICALS-2025-IT-004157

PATIENT

DRUGS (1)
  1. VYXEOS [Suspect]
     Active Substance: CYTARABINE\DAUNORUBICIN
     Indication: Acute myeloid leukaemia
     Dates: start: 2023

REACTIONS (3)
  - Acute myeloid leukaemia [Fatal]
  - Subarachnoid haemorrhage [Recovered/Resolved]
  - Pancytopenia [Unknown]
